FAERS Safety Report 16340868 (Version 2)
Quarter: 2019Q4

REPORT INFORMATION
  Report Type: Report from Study
  Country: US (occurrence: US)
  Receive Date: 20190522
  Receipt Date: 20191014
  Transmission Date: 20200122
  Serious: Yes (Hospitalization)
  Sender: FDA-Public Use
  Company Number: US-ROCHE-2319661

PATIENT
  Age: 78 Year
  Sex: Male
  Weight: 57.27 kg

DRUGS (24)
  1. ATEZOLIZUMAB. [Suspect]
     Active Substance: ATEZOLIZUMAB
     Indication: SMALL CELL LUNG CANCER
     Dosage: SUBSEQUENTLY RECEIVED NEXT DOSES ON 28/FEB/2018, 28/MAR/2018, 18/APR/2018, 09/MAY/2018, 30/MAY/2018,
     Route: 042
     Dates: start: 20180115
  2. ANORO ELLIPTA [Concomitant]
     Active Substance: UMECLIDINIUM BROMIDE\VILANTEROL TRIFENATATE
     Dosage: 1 PUFF, 62.5 MCG AND 25 MCG
     Route: 055
     Dates: start: 201711, end: 201712
  3. DRONABINOL. [Concomitant]
     Active Substance: DRONABINOL
     Route: 048
  4. BLINDED TRILACICLIB [Suspect]
     Active Substance: TRILACICLIB
     Indication: SMALL CELL LUNG CANCER
     Dosage: FREQUENCY- DAILY ON DAYS1,2 AND 3 OF EACH 21-DAY CYCLE E/P/A THERAPY CYCLE (UP TO 4 CYCLES IN TOTAL)
     Route: 042
     Dates: start: 20180115
  5. HYDROCODONE [Concomitant]
     Active Substance: HYDROCODONE
     Route: 048
     Dates: start: 201803
  6. COLACE [Concomitant]
     Active Substance: DOCUSATE SODIUM
     Route: 048
  7. VITAMIN B12 [Concomitant]
     Active Substance: CYANOCOBALAMIN
     Indication: PROPHYLAXIS
     Dosage: DAILY 6 DOSES
     Route: 065
     Dates: start: 20180104
  8. ACETAMINOPHEN. [Concomitant]
     Active Substance: ACETAMINOPHEN
     Route: 048
     Dates: start: 20180206
  9. CARBOPLATIN. [Suspect]
     Active Substance: CARBOPLATIN
     Dosage: AUC OF 4 MILLIGRAMS PER MILLILITER PER MINUTE (MG/ML/MIN)
     Route: 042
     Dates: start: 20180228
  10. COLACE [Concomitant]
     Active Substance: DOCUSATE SODIUM
     Route: 048
     Dates: start: 20181115
  11. DRONABINOL. [Concomitant]
     Active Substance: DRONABINOL
     Route: 048
     Dates: start: 20180214
  12. OXYCODONE [Concomitant]
     Active Substance: OXYCODONE
     Route: 048
     Dates: start: 20180215
  13. PREDNISONE. [Concomitant]
     Active Substance: PREDNISONE
     Route: 048
  14. CARBOPLATIN. [Suspect]
     Active Substance: CARBOPLATIN
     Dosage: AUC OF 4 MILLIGRAMS PER MILLILITER PER MINUTE (MG/ML/MIN)
     Route: 042
     Dates: start: 20180328
  15. ACETAMINOPHEN. [Concomitant]
     Active Substance: ACETAMINOPHEN
     Route: 054
     Dates: start: 20190508, end: 20190707
  16. ARMOUR THYROID [Concomitant]
     Active Substance: THYROID, PORCINE
     Indication: CHRONIC OBSTRUCTIVE PULMONARY DISEASE
     Route: 048
     Dates: start: 20190329
  17. DESONIDE. [Concomitant]
     Active Substance: DESONIDE
     Indication: CHRONIC OBSTRUCTIVE PULMONARY DISEASE
     Dosage: 1 OTHER
     Route: 061
  18. SENNOSIDES. [Concomitant]
     Active Substance: SENNOSIDES
     Indication: CONSTIPATION
     Route: 048
  19. VANCOMYCIN [Concomitant]
     Active Substance: VANCOMYCIN
     Indication: CHRONIC OBSTRUCTIVE PULMONARY DISEASE
     Dosage: DOSING REGIMEN- UNKNOWN
     Route: 065
     Dates: start: 20180128
  20. CALCIUM VITAMIN D [Concomitant]
     Active Substance: CALCIUM\VITAMIN D
     Route: 048
  21. FAMOTIDINE. [Concomitant]
     Active Substance: FAMOTIDINE
     Route: 065
     Dates: start: 20190508, end: 20190706
  22. ETOPOSIDE. [Suspect]
     Active Substance: ETOPOSIDE
     Indication: SMALL CELL LUNG CANCER
     Dosage: FREQUENCY- DAILY ON DAYS 1, 2, AND 3 OF EACH 21-DAY CYCLE?SUBSEQUENTLY RECEIVED NEXT DOSE OF 186 MG/
     Route: 042
     Dates: start: 20180115
  23. CARBOPLATIN. [Suspect]
     Active Substance: CARBOPLATIN
     Indication: SMALL CELL LUNG CANCER
     Dosage: AUC OF 5 MILLIGRAMS PER MILLILITER PER MINUTE (MG/ML/MIN)
     Route: 042
     Dates: start: 20180115
  24. CARBOPLATIN. [Suspect]
     Active Substance: CARBOPLATIN
     Dosage: AUC OF 4 MILLIGRAMS PER MILLILITER PER MINUTE (MG/ML/MIN)
     Route: 042
     Dates: start: 20180418

REACTIONS (1)
  - Chronic obstructive pulmonary disease [Recovered/Resolved]

NARRATIVE: CASE EVENT DATE: 20190508
